FAERS Safety Report 8461018 (Version 4)
Quarter: 2014Q1

REPORT INFORMATION
  Report Type: Spontaneous
  Country: US (occurrence: US)
  Receive Date: 20120315
  Receipt Date: 20130107
  Transmission Date: 20141002
  Serious: No
  Sender: FDA-Public Use
  Company Number: PHEH2012US005635

PATIENT
  Age: 71 Year
  Sex: Female
  Weight: 64.4 kg

DRUGS (14)
  1. GILENYA (FTY) CAPSULE, 0.5MG [Suspect]
     Indication: MULTIPLE SCLEROSIS
     Dosage: 0.5 MG, QD
     Route: 048
     Dates: start: 20120308
  2. PROLIA (DENOSUMAB) [Concomitant]
  3. PROBIOTICA (LACTOBACILLUS REUTERI) [Concomitant]
  4. CALCIUM WITH VITAMIN D (CALCIUM PHOSPHATE, CALCIUM SODIUM LACTATE, ERGOCALCIFEROL) [Concomitant]
  5. TIZANIDINE (TIZANIDINE) [Concomitant]
  6. PROVIGIL (MODAFINIL) [Concomitant]
  7. ZOCOR (SIMVASTATIN) [Concomitant]
  8. AMBIEN (ZOLPIDEM TARTRATE) [Concomitant]
  9. AMANTADINE [Concomitant]
  10. ASPIRIN (ACETYLSALICYLIC ACID) [Concomitant]
  11. CENTRUM (MINERALS NOS, VITAMINS NOS) [Concomitant]
  12. K-DUR (POTASSIUM CHLORIDE) [Concomitant]
  13. VESICARE (SOLIFENACIN) [Concomitant]
  14. PROBIATA [Concomitant]

REACTIONS (6)
  - Diarrhoea [Recovered/Resolved]
  - Hypoaesthesia [None]
  - Vomiting [None]
  - Back pain [None]
  - Postoperative wound infection [None]
  - Paraesthesia [None]
